FAERS Safety Report 4704781-9 (Version None)
Quarter: 2005Q2

REPORT INFORMATION
  Report Type: 
  Country: None (occurrence: None)
  Receive Date: 20050630
  Receipt Date: 20050614
  Transmission Date: 20051028
  Serious: Yes (Other)
  Sender: FDA-Public Use
  Company Number: 200511963GDS

PATIENT
  Age: 61 Year
  Sex: Male

DRUGS (11)
  1. ADALAT [Suspect]
     Dates: start: 19920101
  2. ACETYLSALICYLIC ACID SRT [Suspect]
     Indication: MYOCARDIAL ISCHAEMIA
     Dosage: 100 MG, TOTAL DAILY, ORAL
     Route: 048
     Dates: start: 19920101
  3. ANGININE (GLYCERYL TRINITRATE) [Suspect]
     Dosage: PRN, TOPICAL
     Route: 061
  4. CARDIZEM [Suspect]
     Indication: MYOCARDIAL ISCHAEMIA
     Dosage: 90 MG, TOTAL DAILY, ORAL
     Route: 048
     Dates: start: 19920101
  5. ZANTAC [Suspect]
     Indication: MYOCARDIAL ISCHAEMIA
     Dosage: 300 MG, TOTAL DAILY, ORAL
     Route: 048
     Dates: start: 19920101
  6. AMIODARONE HYDROCHLORIDE [Suspect]
     Indication: CARDIAC FAILURE CONGESTIVE
     Dosage: 400 MG, TOTAL DAILY, ORAL
     Route: 048
     Dates: start: 19940427, end: 19940608
  7. IMDUR [Suspect]
     Indication: MYOCARDIAL ISCHAEMIA
     Dosage: 60 MG, TOTAL DAILY,ORAL
     Route: 048
     Dates: start: 19920101
  8. CAPOTEN [Suspect]
     Indication: MYOCARDIAL ISCHAEMIA
     Dosage: 37 MG, TOTAL DAILY, ORAL
     Route: 048
     Dates: start: 19920101
  9. FUROSEMIDE [Suspect]
     Indication: MYOCARDIAL ISCHAEMIA
     Dosage: 80 MG, TOTAL DAILY, ORAL
     Route: 048
     Dates: start: 19920101
  10. SLOW-K [Suspect]
     Indication: MYOCARDIAL ISCHAEMIA
     Dosage: 1.2 G, TOTAL DAILY, ORAL
     Route: 048
     Dates: start: 19920101
  11. VENTOLIN [Suspect]
     Indication: EMPHYSEMA
     Dosage: 12 PUFF, TOTAL DAILY,  RESPIRATORY INHALATION
     Route: 055
     Dates: start: 19920101

REACTIONS (1)
  - CRYPTOGENIC ORGANIZING PNEUMONIA [None]
